FAERS Safety Report 19367551 (Version 1)
Quarter: 2021Q2

REPORT INFORMATION
  Report Type: Spontaneous
  Country: US (occurrence: US)
  Receive Date: 20210602
  Receipt Date: 20210602
  Transmission Date: 20210717
  Serious: Yes (Other)
  Sender: FDA-Public Use
  Company Number: US-ABBVIE-21K-163-3925259-00

PATIENT
  Age: 36 Year
  Sex: Female

DRUGS (8)
  1. ORILISSA [Suspect]
     Active Substance: ELAGOLIX SODIUM
     Indication: PRODUCT USED FOR UNKNOWN INDICATION
     Route: 048
     Dates: start: 20200513, end: 20200902
  2. TRAMADOL. [Concomitant]
     Active Substance: TRAMADOL
     Indication: PRODUCT USED FOR UNKNOWN INDICATION
  3. DEPO?PROVERA [Concomitant]
     Active Substance: MEDROXYPROGESTERONE ACETATE
     Indication: PRODUCT USED FOR UNKNOWN INDICATION
     Dates: start: 201910
  4. ORILISSA [Suspect]
     Active Substance: ELAGOLIX SODIUM
     Route: 048
     Dates: start: 20201002
  5. GABAPENTIN. [Concomitant]
     Active Substance: GABAPENTIN
     Indication: PRODUCT USED FOR UNKNOWN INDICATION
  6. KYLEENA [Concomitant]
     Active Substance: LEVONORGESTREL
     Indication: PRODUCT USED FOR UNKNOWN INDICATION
     Dosage: IUD
     Route: 015
  7. LUPRON DEPOT [Suspect]
     Active Substance: LEUPROLIDE ACETATE
     Indication: PRODUCT USED FOR UNKNOWN INDICATION
     Route: 030
     Dates: start: 20200922
  8. DANAZOL. [Concomitant]
     Active Substance: DANAZOL
     Indication: PRODUCT USED FOR UNKNOWN INDICATION
     Dosage: PR

REACTIONS (32)
  - Gastrointestinal pain [Unknown]
  - Gallbladder disorder [Unknown]
  - Sphincter of Oddi dysfunction [Unknown]
  - Ovarian disorder [Unknown]
  - Arthralgia [Unknown]
  - Pancreatitis chronic [Unknown]
  - Ovulation pain [Unknown]
  - Dyschezia [Unknown]
  - Alanine aminotransferase increased [Unknown]
  - Lymphadenopathy [Unknown]
  - Blood triglycerides increased [Unknown]
  - Purulent discharge [Unknown]
  - Proctalgia [Unknown]
  - Vaginal haemorrhage [Unknown]
  - Drug ineffective [Unknown]
  - Gastritis [Unknown]
  - Noninfective oophoritis [Unknown]
  - Peripheral swelling [Unknown]
  - Adnexa uteri pain [Unknown]
  - Immune-mediated endocrinopathy [Unknown]
  - Hot flush [Unknown]
  - Amenorrhoea [Unknown]
  - Cholecystectomy [Unknown]
  - Ovarian cyst [Unknown]
  - Endometriosis [Unknown]
  - Gastrointestinal wall thickening [Unknown]
  - Weight fluctuation [Unknown]
  - Headache [Unknown]
  - Menstruation irregular [Unknown]
  - Biliary tract disorder [Unknown]
  - Hypersensitivity [Unknown]
  - Depression [Unknown]

NARRATIVE: CASE EVENT DATE: 2020
